FAERS Safety Report 15609709 (Version 7)
Quarter: 2020Q1

REPORT INFORMATION
  Report Type: Report from Study
  Country: None (occurrence: CO)
  Receive Date: 20181113
  Receipt Date: 20200307
  Transmission Date: 20200409
  Serious: Yes (Hospitalization, Other)
  Sender: FDA-Public Use
  Company Number: CO-ABBVIE-18K-036-2236384-00

PATIENT
  Age: 69 Year
  Sex: Female
  Weight: 49 kg

DRUGS (4)
  1. ARAVA [Concomitant]
     Active Substance: LEFLUNOMIDE
     Indication: PRODUCT USED FOR UNKNOWN INDICATION
  2. PREDNISOLONE. [Concomitant]
     Active Substance: PREDNISOLONE
     Indication: PRODUCT USED FOR UNKNOWN INDICATION
  3. HUMIRA [Suspect]
     Active Substance: ADALIMUMAB
     Indication: RHEUMATOID ARTHRITIS
     Route: 058
     Dates: start: 20100819
  4. METHOTREXATE. [Concomitant]
     Active Substance: METHOTREXATE
     Indication: PRODUCT USED FOR UNKNOWN INDICATION

REACTIONS (18)
  - Cellulitis [Not Recovered/Not Resolved]
  - Blister [Recovering/Resolving]
  - Immunodeficiency [Unknown]
  - Immunosuppression [Unknown]
  - Pain [Unknown]
  - Herpes zoster [Unknown]
  - Osteomyelitis [Not Recovered/Not Resolved]
  - Cataract [Recovering/Resolving]
  - Neuralgia [Unknown]
  - Post procedural complication [Unknown]
  - Hyperhidrosis [Recovering/Resolving]
  - Diabetes mellitus [Recovering/Resolving]
  - Influenza [Unknown]
  - Head injury [Recovering/Resolving]
  - Skin ulcer [Not Recovered/Not Resolved]
  - Fall [Recovering/Resolving]
  - Pneumonia [Recovering/Resolving]
  - Asthma [Unknown]

NARRATIVE: CASE EVENT DATE: 2016
